FAERS Safety Report 4357386-6 (Version None)
Quarter: 2004Q2

REPORT INFORMATION
  Report Type: 
  Country: None (occurrence: None)
  Receive Date: 20040510
  Receipt Date: 20040423
  Transmission Date: 20050107
  Serious: Yes (Hospitalization)
  Sender: FDA-Public Use
  Company Number: DSA_24327_2004

PATIENT
  Age: 20 Year
  Sex: Male

DRUGS (6)
  1. ENALAPRIL MALEATE [Suspect]
     Indication: HYPERTENSION
     Dates: end: 20040406
  2. CIPROFLOXACIN HYDROCHLORIDE [Suspect]
     Indication: PYREXIA
     Dates: start: 20040403, end: 20040406
  3. CEFTRIAXONE SODIUM [Suspect]
     Indication: PYREXIA
     Dates: start: 20040403, end: 20040406
  4. METHADONE HYDROCHLORIDE [Concomitant]
  5. CYCLOSPORINE [Concomitant]
  6. PREDNISONE [Concomitant]

REACTIONS (7)
  - HAEMATOMA [None]
  - NEUTROPHIL COUNT DECREASED [None]
  - PYREXIA [None]
  - REFUSAL OF TREATMENT BY PATIENT [None]
  - RENAL DISORDER [None]
  - WHITE BLOOD CELL COUNT DECREASED [None]
  - WOUND [None]
